FAERS Safety Report 7904150-4 (Version None)
Quarter: 2011Q4

REPORT INFORMATION
  Report Type: 
  Country: None (occurrence: None)
  Receive Date: 20111109
  Receipt Date: 20111107
  Transmission Date: 20120403
  Serious: Yes (Hospitalization, Other)
  Sender: FDA-Public Use
  Company Number: JP-PFIZER INC-2011122809

PATIENT
  Age: 51 Year
  Sex: Male
  Weight: 66 kg

DRUGS (16)
  1. LYRICA [Suspect]
     Dosage: 525 MG, 2X/DAY
     Route: 048
     Dates: start: 20110121, end: 20110519
  2. LYRICA [Suspect]
     Dosage: 450 MG, 2X/DAY
     Route: 048
     Dates: start: 20110520
  3. NORTRIPTYLINE HCL [Suspect]
     Dosage: 30 MG, 1X/DAY
     Route: 048
     Dates: start: 20110221, end: 20110317
  4. LOXONIN [Suspect]
     Indication: POST-THORACOTOMY PAIN SYNDROME
     Dosage: 60 MG, TWICE OR THREE TIMES DAILY
     Route: 048
     Dates: start: 20101005, end: 20110306
  5. NORTRIPTYLINE HCL [Suspect]
     Dosage: 10 MG, 1X/DAY
     Route: 048
     Dates: start: 20110318
  6. NORTRIPTYLINE HCL [Suspect]
     Dosage: 20 MG, 1X/DAY
     Route: 048
     Dates: start: 20101203, end: 20110220
  7. ROZEREM [Concomitant]
     Indication: INSOMNIA
     Dosage: 8 MG, 1X/DAY
     Route: 048
     Dates: start: 20110318, end: 20110322
  8. NORTRIPTYLINE HCL [Suspect]
     Indication: POST-THORACOTOMY PAIN SYNDROME
     Dosage: 10 MG, 1X/DAY
     Route: 048
     Dates: start: 20101126, end: 20101202
  9. CLONAZEPAM [Concomitant]
     Indication: POST-THORACOTOMY PAIN SYNDROME
     Dosage: 0.5 MG, 1X/DAY
     Route: 048
     Dates: start: 20101006, end: 20110306
  10. MUCOSTA [Concomitant]
     Indication: PROPHYLAXIS
     Dosage: 100 MG, 2 OR 3 TIMES DAILY
     Route: 048
     Dates: start: 20101005, end: 20110306
  11. LYRICA [Suspect]
     Dosage: 75 MG, 3X/DAY
     Route: 048
     Dates: start: 20101224, end: 20110101
  12. GABAPENTIN [Suspect]
     Dosage: 600 MG, 3X/DAY
     Route: 048
     Dates: start: 20101105, end: 20101223
  13. GABAPENTIN [Suspect]
     Indication: POST-THORACOTOMY PAIN SYNDROME
     Dosage: 200 MG, 3X/DAY
     Route: 048
     Dates: start: 20101006, end: 20101028
  14. AMITRIPTYLINE HCL [Suspect]
     Indication: POST-THORACOTOMY PAIN SYNDROME
     Dosage: 30 MG, 1X/DAY
     Route: 048
     Dates: start: 20110318
  15. LYRICA [Suspect]
     Indication: POST-THORACOTOMY PAIN SYNDROME
     Dosage: 600MG/DAY
     Route: 048
     Dates: start: 20101201, end: 20101223
  16. LYRICA [Suspect]
     Dosage: 150 MG, 2X/DAY
     Route: 048
     Dates: start: 20110101, end: 20110120

REACTIONS (2)
  - WEIGHT INCREASED [None]
  - CARDIAC FAILURE [None]
